FAERS Safety Report 5972756-8 (Version None)
Quarter: 2008Q4

REPORT INFORMATION
  Report Type: 
  Country: None (occurrence: None)
  Receive Date: 20081126
  Receipt Date: 20081126
  Transmission Date: 20090506
  Serious: Yes (Hospitalization)
  Sender: FDA-Public Use
  Company Number: None

PATIENT
  Age: 72 Year
  Sex: Female
  Weight: 78 kg

DRUGS (1)
  1. AVINZA [Suspect]
     Indication: PROCEDURAL PAIN
     Dosage: 30MG DAILY PO
     Route: 048
     Dates: start: 20080822, end: 20080831

REACTIONS (4)
  - DEVICE MIGRATION [None]
  - FALL [None]
  - HALLUCINATION [None]
  - JOINT INJURY [None]
